FAERS Safety Report 8236726-1 (Version None)
Quarter: 2012Q1

REPORT INFORMATION
  Report Type: 
  Country: None (occurrence: None)
  Receive Date: 20120323
  Receipt Date: 20120314
  Transmission Date: 20120608
  Serious: Yes (Other)
  Sender: FDA-Public Use
  Company Number: AUR-APL-2012-01455

PATIENT
  Sex: Female

DRUGS (2)
  1. VENLAFAXINE [Suspect]
     Indication: DEPRESSION
     Dosage: (375 MG, 1 D), ORAL
     Route: 048
  2. EFFEXOR XR [Suspect]
     Indication: DEPRESSION
     Dosage: (375 MG, 1 D), ORAL
     Route: 048

REACTIONS (5)
  - ANXIETY [None]
  - PRODUCT SUBSTITUTION ISSUE [None]
  - NERVOUSNESS [None]
  - CONDITION AGGRAVATED [None]
  - DEPRESSION [None]
